FAERS Safety Report 18174019 (Version 3)
Quarter: 2020Q4

REPORT INFORMATION
  Report Type: Report from Study
  Country: None (occurrence: US)
  Receive Date: 20200819
  Receipt Date: 20201023
  Transmission Date: 20210113
  Serious: Yes (Hospitalization, Other)
  Sender: FDA-Public Use
  Company Number: US-ABBVIE-20K-163-3525845-00

PATIENT
  Age: 66 Year
  Sex: Male
  Weight: 68.1 kg

DRUGS (7)
  1. VITAMIN C [Concomitant]
     Active Substance: ASCORBIC ACID
     Indication: PRODUCT USED FOR UNKNOWN INDICATION
  2. DUOPA [Suspect]
     Active Substance: CARBIDOPA\LEVODOPA
     Indication: PARKINSON^S DISEASE
     Route: 050
     Dates: start: 20181112, end: 202008
  3. ROPINIROLE HCL [Concomitant]
     Active Substance: ROPINIROLE HYDROCHLORIDE
     Indication: PRODUCT USED FOR UNKNOWN INDICATION
  4. VITAMIN D [Concomitant]
     Active Substance: VITAMIN D NOS
     Indication: PRODUCT USED FOR UNKNOWN INDICATION
  5. COENZYME Q10 [Concomitant]
     Active Substance: DIETARY SUPPLEMENT\UBIDECARENONE
     Indication: PRODUCT USED FOR UNKNOWN INDICATION
  6. ASPRIN [Concomitant]
     Active Substance: ASPIRIN
     Indication: PRODUCT USED FOR UNKNOWN INDICATION
     Dosage: LOW DOSE
  7. DUOPA [Suspect]
     Active Substance: CARBIDOPA\LEVODOPA
     Route: 050
     Dates: start: 2020

REACTIONS (14)
  - Weight decreased [Recovering/Resolving]
  - Small intestine carcinoma [Unknown]
  - Surgery [Unknown]
  - Device leakage [Unknown]
  - Device alarm issue [Unknown]
  - Gallbladder obstruction [Recovered/Resolved]
  - Biliary obstruction [Not Recovered/Not Resolved]
  - Procedural pain [Unknown]
  - Gallbladder obstruction [Unknown]
  - Pancreatic carcinoma [Unknown]
  - Blood urine present [Not Recovered/Not Resolved]
  - Gallbladder cancer [Unknown]
  - Renal cancer [Unknown]
  - Cholelithiasis [Unknown]

NARRATIVE: CASE EVENT DATE: 2020
